FAERS Safety Report 5262312-1 (Version None)
Quarter: 2007Q1

REPORT INFORMATION
  Report Type: 
  Country: None (occurrence: None)
  Receive Date: 20070312
  Receipt Date: 20070226
  Transmission Date: 20070707
  Serious: Yes (Other)
  Sender: FDA-Public Use
  Company Number: PHEH2006US12505

PATIENT
  Age: 78 Year
  Sex: Female

DRUGS (7)
  1. TRILEPTAL [Suspect]
     Indication: NEUROPATHY
     Dosage: 300 MG, BID
     Route: 048
     Dates: start: 20040101
  2. TRILEPTAL [Suspect]
     Dosage: 300 MG, TID
     Route: 048
     Dates: start: 20061201
  3. TRILEPTAL [Suspect]
     Dosage: 300 MG, BID
     Route: 048
  4. AVAPRO [Concomitant]
  5. ZETIA [Concomitant]
  6. WARFARIN SODIUM [Concomitant]
  7. EFFEXOR XR [Concomitant]

REACTIONS (7)
  - ARTHROSCOPIC SURGERY [None]
  - CONDITION AGGRAVATED [None]
  - DIZZINESS [None]
  - HYPERHIDROSIS [None]
  - MENISCUS LESION [None]
  - MENISCUS OPERATION [None]
  - NEUROPATHY [None]
